FAERS Safety Report 5315600-4 (Version None)
Quarter: 2007Q2

REPORT INFORMATION
  Report Type: 
  Country: None (occurrence: None)
  Receive Date: 20070427
  Receipt Date: 20070419
  Transmission Date: 20071010
  Serious: Yes (Hospitalization)
  Sender: FDA-Public Use
  Company Number: 232804K07USA

PATIENT
  Age: 45 Year
  Sex: Female

DRUGS (1)
  1. REBIF [Suspect]
     Indication: MULTIPLE SCLEROSIS
     Dosage: 44 MCG, 3 IN 1 WEEKS, SUBCUTANEOUS
     Route: 058
     Dates: start: 20070130, end: 20070315

REACTIONS (9)
  - COORDINATION ABNORMAL [None]
  - DRUG INEFFECTIVE [None]
  - HYPOAESTHESIA [None]
  - NEUROMYELITIS OPTICA [None]
  - PAIN [None]
  - PARAESTHESIA [None]
  - PARALYSIS [None]
  - SPINAL DISORDER [None]
  - SWELLING [None]
